FAERS Safety Report 5508864-5 (Version None)
Quarter: 2007Q4

REPORT INFORMATION
  Report Type: 
  Country: None (occurrence: None)
  Receive Date: 20071105
  Receipt Date: 20071105
  Transmission Date: 20080405
  Serious: Yes (Other)
  Sender: FDA-Public Use
  Company Number: None

PATIENT
  Age: 41 Year
  Sex: Female

DRUGS (1)
  1. LEVOXYL [Suspect]

REACTIONS (3)
  - DRUG INEFFECTIVE [None]
  - HYPOTHYROIDISM [None]
  - PHARMACEUTICAL PRODUCT COMPLAINT [None]
